FAERS Safety Report 15644392 (Version 2)
Quarter: 2018Q4

REPORT INFORMATION
  Report Type: Spontaneous
  Country: US (occurrence: US)
  Receive Date: 20181121
  Receipt Date: 20181212
  Transmission Date: 20190205
  Serious: No
  Sender: FDA-Public Use
  Company Number: US-PFIZER INC-2018476521

PATIENT
  Age: 47 Year
  Sex: Male

DRUGS (1)
  1. XELJANZ XR [Suspect]
     Active Substance: TOFACITINIB CITRATE
     Indication: ALOPECIA TOTALIS
     Dosage: 11 MG, DAILY
     Route: 048

REACTIONS (3)
  - Asthenia [Unknown]
  - Drug effective for unapproved indication [Unknown]
  - Nausea [Unknown]
